FAERS Safety Report 9659573 (Version 2)
Quarter: 2014Q1

REPORT INFORMATION
  Report Type: Report from Study
  Country: CZ (occurrence: CZ)
  Receive Date: 20131031
  Receipt Date: 20140107
  Transmission Date: 20141002
  Serious: Yes (Hospitalization, Other)
  Sender: FDA-Public Use
  Company Number: CZ-ABBVIE-13P-217-1161775-00

PATIENT
  Age: 68 Year
  Sex: Male
  Weight: 98 kg

DRUGS (15)
  1. HUMIRA [Suspect]
     Indication: PRODUCT USED FOR UNKNOWN INDICATION
     Route: 058
     Dates: start: 20121227
  2. BETALOC [Concomitant]
     Indication: MYOCARDIAL ISCHAEMIA
     Dates: start: 2004
  3. CILAZAPRIL [Concomitant]
     Indication: HYPERTENSION
     Dates: start: 2004
  4. OMNIC [Concomitant]
     Indication: BENIGN PROSTATIC HYPERPLASIA
  5. WARFARIN [Concomitant]
     Dates: start: 20090526
  6. ANOPYRIN [Concomitant]
     Indication: MYOCARDIAL ISCHAEMIA
     Dates: start: 2004
  7. GLUCOPHAGE [Concomitant]
     Indication: DIABETES MELLITUS
  8. BYETTA [Concomitant]
     Indication: DIABETES MELLITUS
     Route: 058
     Dates: start: 2012
  9. MEDROL [Concomitant]
     Indication: RHEUMATOID ARTHRITIS
     Dates: start: 2004
  10. IBALGIN [Concomitant]
     Indication: RHEUMATOID ARTHRITIS
     Dosage: 1-2 TBL
  11. METHOTREXATE [Concomitant]
     Indication: RHEUMATOID ARTHRITIS
     Dates: start: 201212
  12. ACIDUM FOLLICUM [Concomitant]
     Indication: RHEUMATOID ARTHRITIS
     Dosage: AFTER METHOTREXATE
     Dates: start: 201212
  13. DIGOXIN [Concomitant]
     Indication: ATRIAL FIBRILLATION
     Dosage: 1 TBL/DAY AND 1/2 TBL/NEXT DAY
     Dates: start: 20090526
  14. GLIMEGAMMA [Concomitant]
     Indication: DIABETES MELLITUS
  15. ROSUVASTATIN [Concomitant]
     Indication: HYPERLIPIDAEMIA
     Dates: start: 2004

REACTIONS (3)
  - Sick sinus syndrome [Recovered/Resolved]
  - Hyperkalaemia [Unknown]
  - Anaemia [Unknown]
